FAERS Safety Report 8081777-3 (Version None)
Quarter: 2012Q1

REPORT INFORMATION
  Report Type: 
  Country: None (occurrence: None)
  Receive Date: 20120130
  Receipt Date: 20120125
  Transmission Date: 20120608
  Serious: No
  Sender: FDA-Public Use
  Company Number: US-PFIZER INC-2012021084

PATIENT
  Sex: Female
  Weight: 77.098 kg

DRUGS (3)
  1. EFFEXOR XR [Suspect]
     Indication: MENOPAUSAL SYMPTOMS
     Dosage: UNKNOWN DOSE TAKEN ONCE A DAY
     Route: 048
     Dates: start: 20010901, end: 20111201
  2. FEMARA [Concomitant]
     Dosage: UNK
  3. TAMOXIFEN [Concomitant]
     Dosage: UNK

REACTIONS (3)
  - DISCOMFORT [None]
  - FEELING ABNORMAL [None]
  - WITHDRAWAL SYNDROME [None]
